FAERS Safety Report 17654385 (Version 3)
Quarter: 2020Q3

REPORT INFORMATION
  Report Type: Report from Study
  Country: CA (occurrence: CA)
  Receive Date: 20200410
  Receipt Date: 20200723
  Transmission Date: 20201102
  Serious: Yes (Other)
  Sender: FDA-Public Use
  Company Number: CA-GLAXOSMITHKLINE-CA2020AMR059585

PATIENT
  Sex: Female

DRUGS (1)
  1. MEPOLIZUMAB [Suspect]
     Active Substance: MEPOLIZUMAB
     Indication: ASTHMA
     Dosage: 100 MG, Z,(MONTHLY)
     Route: 042
     Dates: start: 20180227

REACTIONS (4)
  - Therapy interrupted [Unknown]
  - Product dose omission issue [Unknown]
  - Immunodeficiency [Unknown]
  - Social problem [Unknown]
